FAERS Safety Report 8740548 (Version 2)
Quarter: 2013Q1

REPORT INFORMATION
  Report Type: Spontaneous
  Country: US (occurrence: US)
  Receive Date: 20120823
  Receipt Date: 20130111
  Transmission Date: 20140127
  Serious: No
  Sender: FDA-Public Use
  Company Number: US-009507513-1208USA007077

PATIENT
  Sex: Male

DRUGS (2)
  1. ASMANEX TWISTHALER [Suspect]
     Indication: RESPIRATORY DISORDER
     Dosage: 220 MICROGRAM, UNK
     Dates: start: 20120726
  2. ALBUTEROL [Concomitant]
     Dosage: UNK

REACTIONS (2)
  - Drug dose omission [Unknown]
  - Product quality issue [Unknown]
